FAERS Safety Report 4606223-0 (Version None)
Quarter: 2005Q1

REPORT INFORMATION
  Report Type: 
  Country: None (occurrence: None)
  Receive Date: 20050311
  Receipt Date: 20050301
  Transmission Date: 20050727
  Serious: Yes (Hospitalization, Other)
  Sender: FDA-Public Use
  Company Number: FR-ABBOTT-05P-056-0292847-00

PATIENT
  Age: 60 Year
  Sex: Female

DRUGS (5)
  1. ZECLAR [Suspect]
     Indication: LUNG INFECTION
     Route: 048
     Dates: start: 20041001
  2. RIFABUTIN [Suspect]
     Indication: LUNG INFECTION
     Route: 048
     Dates: start: 20041001, end: 20050116
  3. CELECOXIB [Concomitant]
     Indication: RHEUMATOID ARTHRITIS
     Route: 048
  4. CATICARDS [Concomitant]
     Indication: DRUG USE FOR UNKNOWN INDICATION
  5. ATROPINIC TREATMENTS [Concomitant]
     Indication: DRUG USE FOR UNKNOWN INDICATION

REACTIONS (2)
  - BLINDNESS [None]
  - UVEITIS [None]
